FAERS Safety Report 9626757 (Version 1)
Quarter: 2013Q4

REPORT INFORMATION
  Report Type: Spontaneous
  Country: NL (occurrence: NL)
  Receive Date: 20131016
  Receipt Date: 20131016
  Transmission Date: 20140711
  Serious: Yes (Hospitalization)
  Sender: FDA-Public Use
  Company Number: PHHY2013NL115571

PATIENT
  Age: 28 Year
  Sex: Female
  Weight: 135 kg

DRUGS (1)
  1. METHYLPHENIDATE [Suspect]
     Indication: ATTENTION DEFICIT/HYPERACTIVITY DISORDER
     Dosage: 50 MG CAPSULE TWICE DAILY
     Dates: start: 2012

REACTIONS (4)
  - Paresis [Recovering/Resolving]
  - Muscle spasms [Recovering/Resolving]
  - Apathy [Recovering/Resolving]
  - Gait disturbance [Recovering/Resolving]
